FAERS Safety Report 4358218-2 (Version None)
Quarter: 2004Q2

REPORT INFORMATION
  Report Type: 
  Country: None (occurrence: None)
  Receive Date: 20040511
  Receipt Date: 20040511
  Transmission Date: 20050107
  Serious: Yes (Congenital Anomaly)
  Sender: FDA-Public Use
  Company Number: MK200401-0288-2

PATIENT
  Sex: Male

DRUGS (1)
  1. ANAFRANIL CAP [Suspect]

REACTIONS (5)
  - CONGENITAL ANOMALY [None]
  - CONGENITAL ATRIAL SEPTAL DEFECT [None]
  - DRUG EXPOSURE DURING PREGNANCY [None]
  - HOLT-ORAM SYNDROME [None]
  - PULMONARY VALVE STENOSIS [None]
